FAERS Safety Report 8295825-9 (Version None)
Quarter: 2012Q2

REPORT INFORMATION
  Report Type: 
  Country: None (occurrence: None)
  Receive Date: 20120418
  Receipt Date: 20120411
  Transmission Date: 20120825
  Serious: Yes (Other)
  Sender: FDA-Public Use
  Company Number: JP-VERTEX PHARMACEUTICALS INC.-AE-2012-005076

PATIENT
  Age: 62 Year
  Sex: Male

DRUGS (13)
  1. RIBAVIRIN [Concomitant]
     Route: 048
     Dates: start: 20120411
  2. PEGINTERFERON [Concomitant]
     Route: 051
     Dates: start: 20120411
  3. RIBAVIRIN [Concomitant]
     Route: 048
     Dates: start: 20120227, end: 20120404
  4. PEGINTERFERON [Concomitant]
     Indication: HEPATITIS C
     Route: 051
     Dates: start: 20120207, end: 20120226
  5. ALLOPURINOL [Concomitant]
     Route: 048
     Dates: start: 20120220
  6. PEGINTERFERON [Concomitant]
     Route: 051
     Dates: start: 20120321, end: 20120404
  7. PEGINTERFERON [Concomitant]
     Route: 051
     Dates: start: 20120227, end: 20120313
  8. RIBAVIRIN [Concomitant]
     Indication: HEPATITIS C
     Route: 048
     Dates: start: 20120207, end: 20120226
  9. PEGINTERFERON [Concomitant]
     Route: 051
     Dates: start: 20120314, end: 20120320
  10. TELAVIC (TELAPREVIR) [Suspect]
     Indication: HEPATITIS C
     Route: 048
     Dates: start: 20120207, end: 20120404
  11. FAMOTIDINE [Concomitant]
     Route: 048
     Dates: start: 20120207
  12. CELESTAMINE TAB [Concomitant]
     Route: 048
     Dates: start: 20120207
  13. LOXONIN [Concomitant]
     Route: 048
     Dates: start: 20120207

REACTIONS (1)
  - RASH [None]
